FAERS Safety Report 9766102 (Version 2)
Quarter: 2014Q4

REPORT INFORMATION
  Report Type: Spontaneous
  Country: US (occurrence: US)
  Receive Date: 20131217
  Receipt Date: 20141217
  Transmission Date: 20150529
  Serious: No
  Sender: FDA-Public Use
  Company Number: US-GLAXOSMITHKLINE-A1018543A

PATIENT

DRUGS (2)
  1. MELOXICAM. [Concomitant]
     Active Substance: MELOXICAM
     Dates: end: 20121206
  2. VOTRIENT [Suspect]
     Active Substance: PAZOPANIB HYDROCHLORIDE
     Indication: RENAL CANCER
     Dosage: 200 MG TABLET
     Route: 048
     Dates: start: 20120617

REACTIONS (11)
  - Nausea [Recovered/Resolved]
  - Disease progression [Unknown]
  - Alanine aminotransferase increased [Recovered/Resolved]
  - Fatigue [Recovered/Resolved]
  - Vision blurred [Recovered/Resolved]
  - Initial insomnia [Recovered/Resolved]
  - Diarrhoea [Recovered/Resolved]
  - Hair colour changes [Recovered/Resolved]
  - Irritability [Recovered/Resolved]
  - Dysgeusia [Recovered/Resolved]
  - Aspartate aminotransferase increased [Recovered/Resolved]

NARRATIVE: CASE EVENT DATE: 201206
